FAERS Safety Report 15188730 (Version 2)
Quarter: 2019Q2

REPORT INFORMATION
  Report Type: Spontaneous
  Country: US (occurrence: US)
  Receive Date: 20180724
  Receipt Date: 20190507
  Transmission Date: 20190711
  Serious: No
  Sender: FDA-Public Use
  Company Number: US-PFIZER INC-2018297738

PATIENT
  Age: 57 Year
  Sex: Female

DRUGS (9)
  1. CEFIXIME. [Suspect]
     Active Substance: CEFIXIME
     Dosage: UNK
  2. DOXYCYCLINE HYCLATE. [Suspect]
     Active Substance: DOXYCYCLINE HYCLATE
     Dosage: UNK
  3. AZITHROMYCIN ANHYDROUS. [Suspect]
     Active Substance: AZITHROMYCIN ANHYDROUS
     Dosage: UNK
  4. ERYTHROMYCIN. [Suspect]
     Active Substance: ERYTHROMYCIN
     Dosage: UNK
  5. BENZOCAINE. [Suspect]
     Active Substance: BENZOCAINE
     Dosage: UNK
  6. BENZONATATE. [Suspect]
     Active Substance: BENZONATATE
     Dosage: UNK
  7. LORATADINE. [Suspect]
     Active Substance: LORATADINE
     Dosage: UNK
  8. IPRATROPIUM [Suspect]
     Active Substance: IPRATROPIUM
     Dosage: UNK
  9. RANITIDINE. [Suspect]
     Active Substance: RANITIDINE
     Dosage: UNK

REACTIONS (1)
  - Drug hypersensitivity [Unknown]
